FAERS Safety Report 12090797 (Version 1)
Quarter: 2016Q1

REPORT INFORMATION
  Report Type: Spontaneous
  Country: FR (occurrence: FR)
  Receive Date: 20160218
  Receipt Date: 20160218
  Transmission Date: 20160526
  Serious: Yes (Other)
  Sender: FDA-Public Use
  Company Number: FR-ASTRAZENECA-2016SE15660

PATIENT
  Age: 31022 Day
  Sex: Female

DRUGS (5)
  1. LAROXYL [Suspect]
     Active Substance: AMITRIPTYLINE
     Indication: PAIN
     Dosage: 40MG/ML THREE DROPS A DAY
     Route: 048
     Dates: start: 20160122, end: 20160125
  2. SKENAN [Suspect]
     Active Substance: MORPHINE SULFATE
     Indication: PAIN
     Route: 048
     Dates: start: 20160116, end: 20160118
  3. INEXIUM [Suspect]
     Active Substance: ESOMEPRAZOLE
     Route: 048
     Dates: start: 20160123, end: 20160125
  4. INEXIUM [Suspect]
     Active Substance: ESOMEPRAZOLE
     Dosage: REDUCED DOSAGE
     Route: 048
  5. SKENAN [Suspect]
     Active Substance: MORPHINE SULFATE
     Indication: PAIN
     Route: 048
     Dates: start: 20160118, end: 20160125

REACTIONS (3)
  - Anxiety [Recovered/Resolved]
  - Melaena [Unknown]
  - Hallucination [Recovered/Resolved]

NARRATIVE: CASE EVENT DATE: 20160124
